FAERS Safety Report 6132430-4 (Version None)
Quarter: 2009Q1

REPORT INFORMATION
  Report Type: 
  Country: None (occurrence: None)
  Receive Date: 20090325
  Receipt Date: 20090325
  Transmission Date: 20090719
  Serious: Yes (Hospitalization)
  Sender: FDA-Public Use
  Company Number: PHHO2004DK01002

PATIENT
  Sex: Female
  Weight: 69 kg

DRUGS (1)
  1. CGS 20267 T30748+ [Suspect]
     Indication: BREAST CANCER
     Dosage: 2.5 MG, QD
     Route: 048
     Dates: start: 20030111, end: 20030911

REACTIONS (4)
  - ENDOMETRIAL CANCER [None]
  - HYSTERECTOMY [None]
  - METASTASIS [None]
  - SALPINGO-OOPHORECTOMY BILATERAL [None]
